FAERS Safety Report 9492918 (Version 8)
Quarter: 2016Q3

REPORT INFORMATION
  Report Type: Spontaneous
  Country: AR (occurrence: AR)
  Receive Date: 20130902
  Receipt Date: 20160817
  Transmission Date: 20161109
  Serious: Yes (Disabling, Other)
  Sender: FDA-Public Use
  Company Number: AR-AMGEN-ARGSP2013061205

PATIENT
  Age: 66 Year
  Sex: Female

DRUGS (7)
  1. PANTOP [Concomitant]
     Dosage: UNK
  2. DIOXAFLEX B12                      /01316601/ [Concomitant]
     Dosage: UNK
  3. DIOSMIN [Concomitant]
     Active Substance: DIOSMIN
     Dosage: UNK
  4. METHOTREXATE. [Concomitant]
     Active Substance: METHOTREXATE
     Dosage: UNK
  5. ENBREL [Suspect]
     Active Substance: ETANERCEPT
     Dosage: 50 MG, WEEKLY
     Route: 065
  6. ENBREL [Suspect]
     Active Substance: ETANERCEPT
     Indication: RHEUMATOID ARTHRITIS
     Dosage: 50 MG, WEEKLY
     Route: 065
     Dates: start: 20121116, end: 201501
  7. PLIDEX                             /00722201/ [Concomitant]
     Dosage: UNK

REACTIONS (16)
  - Cardiac disorder [Not Recovered/Not Resolved]
  - Depression [Not Recovered/Not Resolved]
  - Cardiomegaly [Not Recovered/Not Resolved]
  - Drug ineffective [Not Recovered/Not Resolved]
  - Abasia [Not Recovered/Not Resolved]
  - Eye haemorrhage [Recovered/Resolved]
  - Inflammation [Not Recovered/Not Resolved]
  - Dysstasia [Unknown]
  - Condition aggravated [Not Recovered/Not Resolved]
  - Coronary artery disease [Unknown]
  - Eye pain [Not Recovered/Not Resolved]
  - Visual impairment [Not Recovered/Not Resolved]
  - Arthralgia [Not Recovered/Not Resolved]
  - Nervousness [Not Recovered/Not Resolved]
  - Gait disturbance [Not Recovered/Not Resolved]
  - Malaise [Not Recovered/Not Resolved]

NARRATIVE: CASE EVENT DATE: 201307
